FAERS Safety Report 8901686 (Version 3)
Quarter: 2013Q1

REPORT INFORMATION
  Report Type: Spontaneous
  Country: ES (occurrence: None)
  Receive Date: 20121101
  Receipt Date: 20121212
  Transmission Date: 20140127
  Serious: Yes (Other)
  Sender: FDA-Public Use
  Company Number: ES-1194804

PATIENT
  Age: 65 Year
  Sex: Female

DRUGS (3)
  1. TRAVATAN [Suspect]
     Indication: SCOTOMA
     Route: 047
     Dates: start: 20120222
  2. ISOPTO CARPINE [Suspect]
     Indication: SCOTOMA
     Route: 047
  3. CARTEOLOL [Suspect]
     Indication: SCOTOMA
     Route: 015
     Dates: start: 20110622

REACTIONS (4)
  - Laryngeal oedema [None]
  - Glossitis [None]
  - Swollen tongue [None]
  - Dyspnoea [None]
